FAERS Safety Report 17836611 (Version 1)
Quarter: 2020Q2

REPORT INFORMATION
  Report Type: Spontaneous
  Country: US (occurrence: US)
  Receive Date: 20200528
  Receipt Date: 20200528
  Transmission Date: 20200714
  Serious: Yes (Other)
  Sender: FDA-Public Use
  Company Number: US-PERRIGO-20US007555

PATIENT
  Age: 50 Year
  Sex: Female

DRUGS (6)
  1. PREVACID 24 HR [Suspect]
     Active Substance: LANSOPRAZOLE
     Indication: GASTROOESOPHAGEAL REFLUX DISEASE
  2. PREVACID [Suspect]
     Active Substance: LANSOPRAZOLE
     Indication: PRODUCT USED FOR UNKNOWN INDICATION
     Route: 048
  3. PROTONIX                           /00661201/ [Suspect]
     Active Substance: OMEPRAZOLE
     Dosage: 80 MG
     Route: 042
     Dates: start: 20180712
  4. PROTONIX                           /00661201/ [Suspect]
     Active Substance: OMEPRAZOLE
     Indication: GASTRITIS
     Dosage: 40 MG, BID
     Route: 048
     Dates: start: 2018, end: 2019
  5. PREVACID 24 HR [Suspect]
     Active Substance: LANSOPRAZOLE
     Indication: GASTRITIS
     Dosage: UNK
     Route: 048
     Dates: start: 2010, end: 2017
  6. PRILOSEC [Suspect]
     Active Substance: OMEPRAZOLE MAGNESIUM
     Indication: GASTROOESOPHAGEAL REFLUX DISEASE
     Dosage: UNK
     Route: 048
     Dates: start: 2000, end: 2010

REACTIONS (17)
  - Large intestine polyp [Unknown]
  - Large intestinal polypectomy [Unknown]
  - Jejunostomy [Unknown]
  - Colon cancer [Unknown]
  - Chronic gastritis [Unknown]
  - Gastric cancer [Unknown]
  - Gastric ulcer [Unknown]
  - Gastrectomy [Unknown]
  - Abdominal pain upper [Unknown]
  - Gastric bypass [Unknown]
  - Gastritis [Unknown]
  - Abdominal pain [Unknown]
  - Adenocarcinoma gastric [Unknown]
  - Gastric neoplasm [Unknown]
  - Gastrointestinal wall thickening [Unknown]
  - Gastroenterostomy [Unknown]
  - Vomiting [Not Recovered/Not Resolved]

NARRATIVE: CASE EVENT DATE: 201709
